FAERS Safety Report 7902293-2 (Version None)
Quarter: 2011Q4

REPORT INFORMATION
  Report Type: 
  Country: None (occurrence: None)
  Receive Date: 20111108
  Receipt Date: 20111104
  Transmission Date: 20120403
  Serious: Yes (Hospitalization)
  Sender: FDA-Public Use
  Company Number: BR-ABBOTT-11P-020-0871666-00

PATIENT
  Sex: Female
  Weight: 102 kg

DRUGS (1)
  1. HUMIRA [Suspect]
     Indication: RHEUMATOID ARTHRITIS
     Route: 058

REACTIONS (8)
  - NERVOUSNESS [None]
  - ANXIETY [None]
  - ABASIA [None]
  - PAIN [None]
  - MUSCLE SPASMS [None]
  - MIDDLE EAR EFFUSION [None]
  - URINARY RETENTION [None]
  - PYREXIA [None]
